FAERS Safety Report 18963215 (Version 1)
Quarter: 2021Q1

REPORT INFORMATION
  Report Type: Report from Study
  Country: US (occurrence: US)
  Receive Date: 20210303
  Receipt Date: 20210303
  Transmission Date: 20210420
  Serious: Yes (Hospitalization)
  Sender: FDA-Public Use
  Company Number: US-TAKEDA-US202033465

PATIENT
  Sex: Female

DRUGS (4)
  1. KALBITOR [Suspect]
     Active Substance: ECALLANTIDE
     Indication: IMMUNE SYSTEM DISORDER
     Dosage: 30 MILLIGRAM, PRN
     Route: 058
     Dates: start: 20201026
  2. 643 (LANADELUMAB) [Suspect]
     Active Substance: LANADELUMAB
     Dosage: 300 MILLIGRAM,Q2WEEKS
     Route: 058
     Dates: start: 2018
  3. 643 (LANADELUMAB) [Suspect]
     Active Substance: LANADELUMAB
     Indication: IMMUNE SYSTEM DISORDER
     Dosage: 2 MILLILITER, Q2WEEKS
     Route: 058
     Dates: start: 20181011
  4. 643 (LANADELUMAB) [Suspect]
     Active Substance: LANADELUMAB
     Dosage: 300 MILLIGRAM, Q2WEEKS
     Route: 058
     Dates: start: 20181012

REACTIONS (1)
  - Hereditary angioedema [Recovered/Resolved]
